FAERS Safety Report 4657397-7 (Version None)
Quarter: 2005Q2

REPORT INFORMATION
  Report Type: 
  Country: None (occurrence: None)
  Receive Date: 20050405
  Receipt Date: 20040913
  Transmission Date: 20051028
  Serious: Yes (Other)
  Sender: FDA-Public Use
  Company Number: 2004066255

PATIENT
  Age: 22 Year
  Sex: Male

DRUGS (6)
  1. GEODON [Suspect]
     Indication: OBSESSIVE-COMPULSIVE DISORDER
     Dosage: ORAL
     Route: 048
  2. VALPROATE SODIUM [Concomitant]
  3. RISPERIDONE [Concomitant]
  4. QUETIAPINE FUMARATE [Concomitant]
  5. SERTRALINE HYDROCHLORIDE [Concomitant]
  6. ZONISAMIDE [Concomitant]

REACTIONS (2)
  - DRUG INEFFECTIVE [None]
  - INTENTIONAL MISUSE [None]
